FAERS Safety Report 21965512 (Version 2)
Quarter: 2023Q1

REPORT INFORMATION
  Report Type: Spontaneous
  Country: US (occurrence: US)
  Receive Date: 20230208
  Receipt Date: 20230327
  Transmission Date: 20230418
  Serious: No
  Sender: FDA-Public Use
  Company Number: US-AMGEN-USASP2023015909

PATIENT
  Age: 48 Year
  Sex: Female

DRUGS (1)
  1. REPATHA [Suspect]
     Active Substance: EVOLOCUMAB
     Indication: Blood cholesterol increased
     Dosage: 140 MILLIGRAM, Q2WK
     Route: 065
     Dates: start: 20230110

REACTIONS (6)
  - Pruritus [Unknown]
  - Diarrhoea [Unknown]
  - Migraine [Unknown]
  - Rhinorrhoea [Recovered/Resolved]
  - Chills [Unknown]
  - Blister [Unknown]

NARRATIVE: CASE EVENT DATE: 20230101
